FAERS Safety Report 7405212-0 (Version None)
Quarter: 2011Q2

REPORT INFORMATION
  Report Type: 
  Country: None (occurrence: None)
  Receive Date: 20110411
  Receipt Date: 20101019
  Transmission Date: 20111010
  Serious: Yes (Hospitalization, Other)
  Sender: FDA-Public Use
  Company Number: US-BAYER-201010616NA

PATIENT
  Age: 15 Year
  Sex: Female
  Weight: 61 kg

DRUGS (8)
  1. TRAZODONE HCL [Concomitant]
     Indication: INSOMNIA
     Dosage: UNK
     Dates: start: 20070101
  2. MAXAIR [Concomitant]
     Indication: ASTHMA
     Dosage: UNK
     Dates: start: 20060101
  3. ZOLOFT [Concomitant]
     Indication: ANXIETY
  4. ALPRAZOLAM [Concomitant]
     Indication: ANXIETY
     Dosage: UNK
     Dates: start: 20070101
  5. ZYRTEC [Concomitant]
     Indication: MULTIPLE ALLERGIES
     Dosage: UNK
     Dates: start: 20060101
  6. YAZ [Suspect]
     Indication: MENSTRUATION IRREGULAR
     Route: 048
     Dates: start: 20061001, end: 20070101
  7. ASMANEX TWISTHALER [Concomitant]
     Indication: ASTHMA
     Dosage: UNK
     Dates: start: 20060101
  8. ZOLOFT [Concomitant]
     Indication: DEPRESSION
     Dosage: UNK
     Dates: start: 20070101

REACTIONS (4)
  - CHOLECYSTITIS [None]
  - GALLBLADDER DISORDER [None]
  - MENTAL DISORDER [None]
  - ABDOMINAL PAIN UPPER [None]
